FAERS Safety Report 19267355 (Version 1)
Quarter: 2021Q2

REPORT INFORMATION
  Report Type: Spontaneous
  Country: CN (occurrence: CN)
  Receive Date: 20210517
  Receipt Date: 20210517
  Transmission Date: 20210717
  Serious: Yes (Life-Threatening, Hospitalization)
  Sender: FDA-Public Use
  Company Number: CN-BAXTER-2021BAX011224

PATIENT
  Age: 16 Year
  Sex: Male
  Weight: 50 kg

DRUGS (8)
  1. ENDOXAN [Suspect]
     Active Substance: CYCLOPHOSPHAMIDE
     Dosage: DOSE REINTRODUCED, CYCLOPHOSPHAMIDE + SODIUM CHLORIDE
     Route: 041
     Dates: start: 202105
  2. 0.9% SODIUM CHLORIDE INJECTION [Suspect]
     Active Substance: SODIUM CHLORIDE
     Indication: MEDICATION DILUTION
     Dosage: CYCLOPHOSPHAMIDE 750 MG + SODIUM CHLORIDE 500ML
     Route: 041
     Dates: start: 20210426, end: 20210426
  3. ENDOXAN [Suspect]
     Active Substance: CYCLOPHOSPHAMIDE
     Indication: SOFT TISSUE SARCOMA
     Dosage: CYCLOPHOSPHAMIDE 750 MG + SODIUM CHLORIDE 500 ML
     Route: 041
     Dates: start: 20210426, end: 20210426
  4. 0.9% SODIUM CHLORIDE INJECTION [Suspect]
     Active Substance: SODIUM CHLORIDE
     Dosage: DOXORUBICIN 60 MG + SODIUM CHLORIDE 20ML
     Route: 042
     Dates: start: 20210426, end: 20210426
  5. DOXORUBICIN HYDROCHLORIDE. [Suspect]
     Active Substance: DOXORUBICIN HYDROCHLORIDE
     Dosage: DOSE REINTRODUCED, DOXORUBICIN + SODIUM CHLORIDE
     Route: 042
     Dates: start: 202105
  6. DOXORUBICIN HYDROCHLORIDE. [Suspect]
     Active Substance: DOXORUBICIN HYDROCHLORIDE
     Indication: SOFT TISSUE SARCOMA
     Dosage: DOXORUBICIN 60 MG + SODIUM CHLORIDE 20ML
     Route: 042
     Dates: start: 20210426, end: 20210426
  7. 0.9% SODIUM CHLORIDE INJECTION [Suspect]
     Active Substance: SODIUM CHLORIDE
     Dosage: DOSE REINTRODUCED, CYCLOPHOSPHAMIDE + SODIUM CHLORIDE
     Route: 041
     Dates: start: 202105
  8. 0.9% SODIUM CHLORIDE INJECTION [Suspect]
     Active Substance: SODIUM CHLORIDE
     Dosage: DOSE REINTRODUCED, DOXORUBICIN + SODIUM CHLORIDE
     Route: 042
     Dates: start: 202105

REACTIONS (2)
  - Myelosuppression [Recovering/Resolving]
  - Pyrexia [Recovered/Resolved]

NARRATIVE: CASE EVENT DATE: 20210502
